FAERS Safety Report 12855655 (Version 2)
Quarter: 2016Q4

REPORT INFORMATION
  Report Type: Spontaneous
  Country: US (occurrence: US)
  Receive Date: 20161017
  Receipt Date: 20161031
  Transmission Date: 20170207
  Serious: No
  Sender: FDA-Public Use
  Company Number: US-TAIHO ONCOLOGY INC-EU-2016-02426

PATIENT
  Age: 88 Year
  Sex: Male

DRUGS (11)
  1. LONSURF [Suspect]
     Active Substance: TIPIRACIL HYDROCHLORIDE\TRIFLURIDINE
     Indication: COLON CANCER
     Route: 048
     Dates: start: 20160811
  2. POTASSIUM [Concomitant]
     Active Substance: POTASSIUM
     Dosage: NI
  3. IRON [Concomitant]
     Active Substance: IRON
     Dosage: NI
  4. DILTIAZEM. [Concomitant]
     Active Substance: DILTIAZEM
     Dosage: NI
  5. CALCIUM CARBONATE. [Concomitant]
     Active Substance: CALCIUM CARBONATE
     Dosage: NI
  6. FUROSEMIDE. [Concomitant]
     Active Substance: FUROSEMIDE
     Dosage: NI
  7. COUMADIN [Concomitant]
     Active Substance: WARFARIN SODIUM
     Dosage: NI
  8. TYLENOL PM [Concomitant]
     Active Substance: ACETAMINOPHEN\DIPHENHYDRAMINE
     Dosage: NI
  9. FISH OIL [Concomitant]
     Active Substance: FISH OIL
     Dosage: NI
  10. COREG [Concomitant]
     Active Substance: CARVEDILOL
     Dosage: NI
  11. ATORVASTATIN [Concomitant]
     Active Substance: ATORVASTATIN
     Dosage: NI

REACTIONS (2)
  - Diarrhoea [Recovered/Resolved]
  - Constipation [Not Recovered/Not Resolved]

NARRATIVE: CASE EVENT DATE: 201609
